FAERS Safety Report 15125757 (Version 1)
Quarter: 2018Q3

REPORT INFORMATION
  Report Type: Report from Study
  Country: KR (occurrence: KR)
  Receive Date: 20180710
  Receipt Date: 20180710
  Transmission Date: 20181010
  Serious: Yes (Death, Hospitalization)
  Sender: FDA-Public Use
  Company Number: PHHO2010KR02804

PATIENT
  Age: 54 Year
  Sex: Female
  Weight: 67.3 kg

DRUGS (5)
  1. COMPARATOR PACLITAXEL [Suspect]
     Active Substance: PACLITAXEL
     Indication: BREAST CANCER METASTATIC
     Dosage: 85.06 MG/M2, ONCE A WEEK
     Route: 042
     Dates: start: 20100216, end: 20100216
  2. COMPARATOR TRASTUZUMAB [Suspect]
     Active Substance: TRASTUZUMAB
     Dosage: 2 MG/KG, UNK
     Route: 042
     Dates: start: 20100302
  3. COMPARATOR TRASTUZUMAB [Suspect]
     Active Substance: TRASTUZUMAB
     Indication: BREAST CANCER METASTATIC
     Dosage: 4.64 MG/M2,ONCE A WEEK
     Route: 042
     Dates: start: 20100216, end: 20100216
  4. COMPARATOR PACLITAXEL [Suspect]
     Active Substance: PACLITAXEL
     Dosage: 60 MG/M2, UNK
     Route: 042
     Dates: start: 20100302
  5. AFINITOR [Suspect]
     Active Substance: EVEROLIMUS
     Indication: BREAST CANCER METASTATIC
     Dosage: UNK
     Route: 048
     Dates: start: 20100216, end: 20100219

REACTIONS (11)
  - Febrile neutropenia [Recovered/Resolved]
  - Hypoxia [Fatal]
  - Malignant neoplasm progression [Not Recovered/Not Resolved]
  - Cough [Fatal]
  - Metastases to liver [Not Recovered/Not Resolved]
  - Dyspnoea [Fatal]
  - Chest X-ray abnormal [Fatal]
  - Pneumonia [Fatal]
  - Pyrexia [Fatal]
  - Lung consolidation [Fatal]
  - Hepatic failure [Recovered/Resolved]

NARRATIVE: CASE EVENT DATE: 20100217
